FAERS Safety Report 5485063-7 (Version None)
Quarter: 2007Q4

REPORT INFORMATION
  Report Type: 
  Country: None (occurrence: None)
  Receive Date: 20071009
  Receipt Date: 20071009
  Transmission Date: 20080405
  Serious: No
  Sender: FDA-Public Use
  Company Number: None

PATIENT
  Age: 43 Year
  Sex: Female
  Weight: 52.8894 kg

DRUGS (3)
  1. DEPO-SUBQ PROVERA 104 [Suspect]
     Indication: CONTRACEPTION
     Dosage: 104MG SUBQ 23MOS
     Route: 058
     Dates: start: 20070605
  2. DEPO-SUBQ PROVERA 104 [Suspect]
     Indication: CONTRACEPTION
     Dosage: 104MG SUBQ 23MOS
     Route: 058
     Dates: start: 20070824
  3. DEPO-SUBQ PROVERA 104 [Suspect]

REACTIONS (3)
  - DEVICE FAILURE [None]
  - DRUG ADMINISTRATION ERROR [None]
  - SKIN LESION [None]
